FAERS Safety Report 10463059 (Version 1)
Quarter: 2014Q3

REPORT INFORMATION
  Report Type: Spontaneous
  Country: CN (occurrence: CN)
  Receive Date: 20140919
  Receipt Date: 20140919
  Transmission Date: 20150326
  Serious: Yes (Death)
  Sender: FDA-Public Use
  Company Number: CN-CIPLA LTD.-2014CN01298

PATIENT

DRUGS (4)
  1. CAPECITABINE [Suspect]
     Active Substance: CAPECITABINE
     Indication: PANCREATIC CARCINOMA
     Dosage: 1000 MG ORALLY TWICE A DAY, ON DAYS TWO TO 15, OF A 21 DAY CYCLE
     Dates: start: 20130515
  2. GLUTATHIONE [Concomitant]
     Active Substance: GLUTATHIONE
  3. LEUCOGEN [Concomitant]
     Active Substance: LEUCOGEN
  4. GEMCITABINE [Suspect]
     Active Substance: GEMCITABINE\GEMCITABINE HYDROCHLORIDE
     Indication: PANCREATIC CARCINOMA
     Dosage: 1.2 G, ON DAYS ONE AND EIGHT, OF A 21 DAY CYCLE
     Dates: start: 20130515

REACTIONS (6)
  - Infection [Fatal]
  - Bone marrow failure [Fatal]
  - Hypovolaemic shock [Fatal]
  - Pancreatitis acute [Fatal]
  - Renal failure acute [Fatal]
  - Liver disorder [Fatal]
